FAERS Safety Report 4531296-3 (Version None)
Quarter: 2004Q4

REPORT INFORMATION
  Report Type: 
  Country: None (occurrence: None)
  Receive Date: 20041206
  Receipt Date: 20041005
  Transmission Date: 20050328
  Serious: No
  Sender: FDA-Public Use
  Company Number: USA041080354

PATIENT
  Age: 47 Year
  Sex: Female
  Weight: 94 kg

DRUGS (8)
  1. CYMBALTA [Suspect]
     Indication: FIBROMYALGIA
     Dosage: 60 MG IN THE EVENING
     Dates: start: 20040901
  2. CYMBALTA [Suspect]
     Indication: PAIN
     Dosage: 60 MG IN THE EVENING
     Dates: start: 20040901
  3. EFFEXOR [Concomitant]
  4. HYDROCODONE [Concomitant]
  5. SYNTHROID [Concomitant]
  6. CYTOMEL [Concomitant]
  7. TEMAZEPAM [Concomitant]
  8. AMBIEN [Concomitant]

REACTIONS (12)
  - ANXIETY [None]
  - HYPERACUSIS [None]
  - HYPERHIDROSIS [None]
  - HYPOAESTHESIA ORAL [None]
  - INFLUENZA [None]
  - INSOMNIA [None]
  - IRRITABILITY [None]
  - NASAL CONGESTION [None]
  - NERVOUSNESS [None]
  - PAIN EXACERBATED [None]
  - SOMNOLENCE [None]
  - VISUAL DISTURBANCE [None]
